FAERS Safety Report 20382437 (Version 1)
Quarter: 2022Q1

REPORT INFORMATION
  Report Type: Spontaneous
  Country: US (occurrence: None)
  Receive Date: 20220126
  Receipt Date: 20220126
  Transmission Date: 20220423
  Serious: Yes (Other)
  Sender: FDA-Public Use
  Company Number: None

PATIENT
  Age: 29 Year
  Sex: Male
  Weight: 94.5 kg

DRUGS (3)
  1. EMGALITY [Suspect]
     Active Substance: GALCANEZUMAB-GNLM
     Indication: Migraine
     Dosage: OTHER QUANTITY : 1 INJECTION(S);?OTHER FREQUENCY : ONCE;?
     Route: 030
     Dates: start: 20211221, end: 20211221
  2. MAXALT [Concomitant]
     Active Substance: RIZATRIPTAN BENZOATE
  3. DIETARY SUPPLEMENT [Concomitant]
     Active Substance: DIETARY SUPPLEMENT

REACTIONS (10)
  - Anxiety [None]
  - Panic reaction [None]
  - Paraesthesia [None]
  - Paraesthesia [None]
  - Sensory disturbance [None]
  - Discomfort [None]
  - Burning sensation [None]
  - Sleep disorder [None]
  - Neuralgia [None]
  - Emotional distress [None]

NARRATIVE: CASE EVENT DATE: 20211222
